FAERS Safety Report 5736740-1 (Version None)
Quarter: 2008Q2

REPORT INFORMATION
  Report Type: 
  Country: None (occurrence: None)
  Receive Date: 20080513
  Receipt Date: 20080508
  Transmission Date: 20081010
  Serious: Yes (Life-Threatening, Hospitalization, Other)
  Sender: FDA-Public Use
  Company Number: PHHY2008AR07179

PATIENT
  Age: 48 Year
  Sex: Female

DRUGS (1)
  1. LAMISIL [Suspect]
     Indication: ONYCHOMYCOSIS
     Dosage: 250 MG, QD
     Route: 048
     Dates: start: 20070101, end: 20070101

REACTIONS (14)
  - BLOOD ALKALINE PHOSPHATASE INCREASED [None]
  - BLOOD CHOLESTEROL INCREASED [None]
  - GENERAL PHYSICAL HEALTH DETERIORATION [None]
  - INFLUENZA [None]
  - MECHANICAL VENTILATION [None]
  - OOPHORECTOMY [None]
  - OVARIAN DISORDER [None]
  - PLEURAL EFFUSION [None]
  - PNEUMONIA [None]
  - PYREXIA [None]
  - RESPIRATORY DISORDER [None]
  - SEDATION [None]
  - TRACHEOSTOMY [None]
  - TRANSAMINASES INCREASED [None]
